FAERS Safety Report 9210238 (Version 2)
Quarter: 2013Q2

REPORT INFORMATION
  Report Type: Spontaneous
  Country: DE (occurrence: DE)
  Receive Date: 20130404
  Receipt Date: 20130613
  Transmission Date: 20140414
  Serious: Yes (Hospitalization, Other)
  Sender: FDA-Public Use
  Company Number: DE-JNJFOC-20130317509

PATIENT
  Age: 55 Year
  Sex: Female
  Weight: 46 kg

DRUGS (10)
  1. XARELTO [Suspect]
     Indication: CEREBROVASCULAR ACCIDENT PROPHYLAXIS
     Route: 048
     Dates: start: 201212, end: 201303
  2. XARELTO [Suspect]
     Indication: ATRIAL FIBRILLATION
     Route: 048
     Dates: start: 201212, end: 201303
  3. XARELTO [Suspect]
     Indication: PULMONARY EMBOLISM
     Route: 048
     Dates: start: 201212, end: 201303
  4. L-THYROXIN [Concomitant]
     Route: 065
  5. DIGITOXIN [Concomitant]
     Route: 065
  6. BISOPROLOL [Concomitant]
     Route: 065
  7. FERROUS SULFATE [Concomitant]
     Route: 065
  8. SPIRONOLACTON [Concomitant]
     Route: 065
  9. TOREM [Concomitant]
     Route: 065
  10. REGORAFENIB [Concomitant]
     Indication: METASTATIC NEOPLASM
     Route: 065

REACTIONS (3)
  - Colitis [Recovered/Resolved]
  - Diarrhoea [Recovered/Resolved]
  - Rectal haemorrhage [Recovered/Resolved]
